FAERS Safety Report 6260912-3 (Version None)
Quarter: 2009Q3

REPORT INFORMATION
  Report Type: 
  Country: None (occurrence: None)
  Receive Date: 20090709
  Receipt Date: 20071015
  Transmission Date: 20100115
  Serious: Yes (Other)
  Sender: FDA-Public Use
  Company Number: US-ASTRAZENECA-2006UW21003

PATIENT
  Age: 20988 Day
  Sex: Male
  Weight: 104 kg

DRUGS (12)
  1. SEROQUEL [Suspect]
     Indication: SCHIZOPHRENIA
     Route: 048
     Dates: start: 20060201, end: 20070501
  2. SEROQUEL [Suspect]
     Indication: BIPOLAR DISORDER
     Route: 048
     Dates: start: 20060201, end: 20070501
  3. SEROQUEL [Suspect]
     Indication: ANXIETY
     Route: 048
     Dates: start: 20060201, end: 20070501
  4. COMPAZINE [Concomitant]
     Route: 065
  5. PREDNISONE [Concomitant]
     Indication: GOUT
     Route: 065
  6. PRILOSEC [Concomitant]
     Route: 065
  7. REMERON [Concomitant]
     Route: 065
  8. ZOLOFT [Concomitant]
     Route: 065
  9. LISINOPRIL [Concomitant]
     Route: 065
  10. ZOCOR [Concomitant]
     Route: 065
  11. PROSTA [Concomitant]
     Route: 065
  12. ACTOS [Concomitant]
     Route: 065

REACTIONS (4)
  - DIABETES MELLITUS [None]
  - NEUROPATHY PERIPHERAL [None]
  - RASH [None]
  - TYPE 2 DIABETES MELLITUS [None]
